FAERS Safety Report 10068704 (Version 7)
Quarter: 2015Q2

REPORT INFORMATION
  Report Type: Report from Study
  Country: US (occurrence: US)
  Receive Date: 20140409
  Receipt Date: 20150506
  Transmission Date: 20150821
  Serious: Yes (Hospitalization, Other)
  Sender: FDA-Public Use
  Company Number: US-ALEXION PHARMACEUTICALS INC.-A201401094

PATIENT

DRUGS (11)
  1. CELEXA [Concomitant]
     Active Substance: CITALOPRAM HYDROBROMIDE
     Indication: PRODUCT USED FOR UNKNOWN INDICATION
     Dosage: 25 MG, QD
     Route: 065
     Dates: start: 20120211
  2. HYDROCODONE [Concomitant]
     Active Substance: HYDROCODONE
     Indication: PAIN
     Dosage: UNK, PRN 1 TAB
     Route: 048
     Dates: start: 20120211
  3. COLACE [Concomitant]
     Active Substance: DOCUSATE SODIUM
     Indication: FAECES HARD
     Dosage: 1 CAP, QD
     Route: 048
     Dates: start: 20120211
  4. ZOFRAN                             /00955301/ [Concomitant]
     Active Substance: ONDANSETRON HYDROCHLORIDE
     Indication: NAUSEA
     Dosage: UNK, PRN
     Route: 065
     Dates: start: 20120515
  5. SOLIRIS [Suspect]
     Active Substance: ECULIZUMAB
     Indication: HAEMOLYTIC URAEMIC SYNDROME
     Dosage: 1200 MG, Q2W
     Route: 042
     Dates: start: 20120410
  6. LEVAQUIN [Suspect]
     Active Substance: LEVOFLOXACIN
     Indication: SINUSITIS
     Route: 065
  7. THYMOGLOBULIN [Concomitant]
     Active Substance: LAPINE T-LYMPHOCYTE IMMUNE GLOBULIN
     Indication: PRODUCT USED FOR UNKNOWN INDICATION
     Route: 065
  8. BENADRYL [Concomitant]
     Active Substance: DIPHENHYDRAMINE HYDROCHLORIDE
     Indication: DIALYSIS
     Dosage: 25 MG, PRN
     Route: 065
     Dates: start: 20120211
  9. AMLODIPINE                         /00972402/ [Concomitant]
     Active Substance: AMLODIPINE BESYLATE
     Indication: PRODUCT USED FOR UNKNOWN INDICATION
     Dosage: 5 MG, QD
     Route: 065
     Dates: start: 20120210
  10. FOSRENOL [Concomitant]
     Active Substance: LANTHANUM CARBONATE
     Indication: NEPHROPATHY
     Dosage: 100 MG, TID
     Route: 048
     Dates: start: 20120211
  11. HYDROXYZINE [Concomitant]
     Active Substance: HYDROXYZINE\HYDROXYZINE HYDROCHLORIDE
     Indication: ANTIALLERGIC THERAPY
     Dosage: 25 MG, PRN
     Route: 065
     Dates: start: 20120211

REACTIONS (22)
  - Influenza [Unknown]
  - Nephritis [Unknown]
  - Headache [Unknown]
  - Renal transplant [Unknown]
  - Dizziness [Unknown]
  - Hernia [Unknown]
  - Ear pain [Not Recovered/Not Resolved]
  - Pyrexia [Unknown]
  - Lactose intolerance [Unknown]
  - Gastroenteritis norovirus [Unknown]
  - Nausea [Unknown]
  - Drug hypersensitivity [Unknown]
  - Confusional state [Unknown]
  - Diarrhoea [Unknown]
  - Blood creatinine abnormal [Unknown]
  - Influenza [Unknown]
  - Sinusitis [Unknown]
  - Platelet count decreased [Unknown]
  - Malaise [Unknown]
  - Muscular weakness [Unknown]
  - Vomiting [Unknown]
  - Mobility decreased [Unknown]

NARRATIVE: CASE EVENT DATE: 20130704
